FAERS Safety Report 8500691-X (Version None)
Quarter: 2012Q3

REPORT INFORMATION
  Report Type: 
  Country: None (occurrence: None)
  Receive Date: 20120710
  Receipt Date: 20120703
  Transmission Date: 20120928
  Serious: Yes (Other)
  Sender: FDA-Public Use
  Company Number: US-TEVA-346601USA

PATIENT
  Sex: Male

DRUGS (10)
  1. LIPITOR [Concomitant]
  2. VERAPAMIL [Concomitant]
  3. PROAIR HFA [Suspect]
     Indication: DYSPNOEA
     Dosage: RESCUE ONLY ONCE OR TWICE A MONTH
     Route: 055
  4. CETIRIZINE [Concomitant]
  5. FISH OIL [Concomitant]
  6. QVAR 40 [Suspect]
     Indication: DYSPNOEA
     Dosage: 2 PUFFS AM AND PM
     Route: 055
  7. OXYCODONE HCL [Concomitant]
     Indication: MIGRAINE
     Dosage: AS NEEDED
  8. ASPIRIN [Concomitant]
  9. LISINOPRIL [Concomitant]
  10. DIVALPROEX SODIUM [Concomitant]

REACTIONS (2)
  - CEREBROVASCULAR ACCIDENT [None]
  - APHASIA [None]
